FAERS Safety Report 7457967-7 (Version None)
Quarter: 2011Q2

REPORT INFORMATION
  Report Type: 
  Country: None (occurrence: None)
  Receive Date: 20110504
  Receipt Date: 20110426
  Transmission Date: 20111010
  Serious: Yes (Hospitalization)
  Sender: FDA-Public Use
  Company Number: US-AMGEN-USASP2011021924

PATIENT
  Age: 53 Year
  Sex: Female

DRUGS (2)
  1. ENBREL [Suspect]
     Indication: PSORIATIC ARTHROPATHY
     Dosage: 50 MG, QWK
     Dates: start: 20090424, end: 20100701
  2. METHOTREXATE [Concomitant]

REACTIONS (5)
  - CELLULITIS [None]
  - PAIN OF SKIN [None]
  - SINUSITIS [None]
  - DERMATITIS INFECTED [None]
  - PSORIASIS [None]
